FAERS Safety Report 13239516 (Version 1)
Quarter: 2017Q1

REPORT INFORMATION
  Report Type: Spontaneous
  Country: DE (occurrence: DE)
  Receive Date: 20170216
  Receipt Date: 20170216
  Transmission Date: 20170428
  Serious: Yes (Death)
  Sender: FDA-Public Use
  Company Number: PHHY2017DE023414

PATIENT

DRUGS (9)
  1. NILOTINIB [Suspect]
     Active Substance: NILOTINIB
     Indication: LYMPHOCYTIC LEUKAEMIA
  2. NILOTINIB [Suspect]
     Active Substance: NILOTINIB
     Indication: EOSINOPHILIA
  3. DASATINIB [Suspect]
     Active Substance: DASATINIB
     Indication: MYELOID LEUKAEMIA
     Dosage: UNK
     Route: 065
  4. DASATINIB [Suspect]
     Active Substance: DASATINIB
     Indication: EOSINOPHILIA
  5. DASATINIB [Suspect]
     Active Substance: DASATINIB
     Indication: LYMPHOCYTIC LEUKAEMIA
  6. IMATINIB [Suspect]
     Active Substance: IMATINIB
     Indication: MYELOID LEUKAEMIA
  7. IMATINIB [Suspect]
     Active Substance: IMATINIB
     Indication: LYMPHOCYTIC LEUKAEMIA
     Dosage: UNK
     Route: 065
  8. NILOTINIB [Suspect]
     Active Substance: NILOTINIB
     Indication: MYELOID LEUKAEMIA
     Dosage: UNK
     Route: 065
  9. IMATINIB [Suspect]
     Active Substance: IMATINIB
     Indication: EOSINOPHILIA

REACTIONS (3)
  - Therapy non-responder [Unknown]
  - Lymphadenopathy [Fatal]
  - Acute myeloid leukaemia recurrent [Fatal]
